FAERS Safety Report 15734901 (Version 4)
Quarter: 2019Q2

REPORT INFORMATION
  Report Type: Spontaneous
  Country: IT (occurrence: IT)
  Receive Date: 20181218
  Receipt Date: 20190517
  Transmission Date: 20190711
  Serious: Yes (Life-Threatening, Hospitalization, Other)
  Sender: FDA-Public Use
  Company Number: IT-CELGENEUS-ITA-20181203030

PATIENT
  Age: 74 Year
  Sex: Male

DRUGS (12)
  1. AZACITIDINE. [Suspect]
     Active Substance: AZACITIDINE
     Dosage: 300 MILLIGRAM
     Route: 058
     Dates: start: 20180720, end: 20181205
  2. ALLOPURINOL. [Concomitant]
     Active Substance: ALLOPURINOL
     Dosage: 300 MILLIGRAM
     Route: 048
     Dates: start: 20180616, end: 20180619
  3. ALLOPURINOL. [Concomitant]
     Active Substance: ALLOPURINOL
     Dosage: 600 MILLIGRAM
     Route: 048
     Dates: start: 20180624, end: 20180627
  4. TRANEX [Concomitant]
     Active Substance: TRANEXAMIC ACID
     Indication: HAEMORRHAGE PROPHYLAXIS
     Dosage: 1500 MILLIGRAM
     Route: 048
     Dates: start: 20180803, end: 20181205
  5. RANITIDINE. [Concomitant]
     Active Substance: RANITIDINE
     Indication: GASTRITIS PROPHYLAXIS
     Route: 048
     Dates: start: 20180611, end: 20181205
  6. VENETOCLAX. [Concomitant]
     Active Substance: VENETOCLAX
     Indication: ACUTE MYELOID LEUKAEMIA
     Route: 065
  7. AZACITIDINE. [Suspect]
     Active Substance: AZACITIDINE
     Indication: ACUTE MYELOID LEUKAEMIA
     Dosage: 75 MILLIGRAM/SQ. METER
     Route: 058
     Dates: start: 20180613, end: 20181118
  8. ALLOPURINOL. [Concomitant]
     Active Substance: ALLOPURINOL
     Indication: PROPHYLAXIS
     Dosage: 300 MILLIGRAM
     Route: 048
     Dates: start: 20180720, end: 20181205
  9. MAGNESIUM HYDROXIDE, ALUMINUM OXIDE [Concomitant]
     Dosage: 3 DOSAGE FORMS
     Route: 048
     Dates: start: 20180612, end: 20180619
  10. AZACITIDINE. [Suspect]
     Active Substance: AZACITIDINE
     Dosage: 600 MILLIGRAM
     Route: 058
     Dates: start: 20180624, end: 20180627
  11. MAGNESIUM HYDROXIDE, ALUMINUM OXIDE [Concomitant]
     Indication: ANTACID THERAPY
     Dosage: 3 DOSAGE FORMS
     Route: 048
     Dates: start: 20180626, end: 20181205
  12. AZACITIDINE. [Suspect]
     Active Substance: AZACITIDINE
     Dosage: 300 MILLIGRAM
     Route: 058
     Dates: start: 20180616, end: 20180619

REACTIONS (2)
  - Acute kidney injury [Recovered/Resolved]
  - Leukocytosis [Not Recovered/Not Resolved]

NARRATIVE: CASE EVENT DATE: 20181205
